FAERS Safety Report 14079185 (Version 1)
Quarter: 2017Q4

REPORT INFORMATION
  Report Type: Spontaneous
  Country: RO (occurrence: RO)
  Receive Date: 20171012
  Receipt Date: 20171012
  Transmission Date: 20180321
  Serious: Yes (Congenital Anomaly, Other)
  Sender: FDA-Public Use
  Company Number: RO-VIIV HEALTHCARE LIMITED-RO2017GSK154814

PATIENT
  Sex: Male

DRUGS (6)
  1. LAMIVUDINE. [Suspect]
     Active Substance: LAMIVUDINE
     Dosage: PEDIATRIC FORMULATION
  2. LAMIVUDINE. [Suspect]
     Active Substance: LAMIVUDINE
     Indication: HIV INFECTION
     Route: 064
  3. NEVIRAPINE. [Suspect]
     Active Substance: NEVIRAPINE
     Indication: HIV INFECTION
     Route: 064
  4. ZIDOVUDINE. [Suspect]
     Active Substance: ZIDOVUDINE
     Indication: HIV INFECTION
     Route: 064
  5. MILK POWDER [Concomitant]
     Indication: PRODUCT USED FOR UNKNOWN INDICATION
  6. ZIDOVUDINE. [Suspect]
     Active Substance: ZIDOVUDINE
     Dosage: PEDIATRIC FORMULATION

REACTIONS (3)
  - Developmental delay [Unknown]
  - Dandy-Walker syndrome [Unknown]
  - Foetal exposure during pregnancy [Unknown]
